FAERS Safety Report 6266734-1 (Version None)
Quarter: 2009Q3

REPORT INFORMATION
  Report Type: 
  Country: None (occurrence: None)
  Receive Date: 20090714
  Receipt Date: 20071108
  Transmission Date: 20100115
  Serious: Yes (Hospitalization, Other)
  Sender: FDA-Public Use
  Company Number: US-ASTRAZENECA-2007UW01794

PATIENT
  Age: 21942 Day
  Sex: Male
  Weight: 79.4 kg

DRUGS (11)
  1. SEROQUEL [Suspect]
     Indication: DEPRESSION
     Route: 048
     Dates: start: 20020421
  2. SEROQUEL [Suspect]
     Indication: SCHIZOPHRENIA
     Route: 048
     Dates: start: 20020421
  3. SEROQUEL [Suspect]
     Route: 048
     Dates: start: 20031201
  4. SEROQUEL [Suspect]
     Route: 048
     Dates: start: 20031201
  5. RISPERDAL [Suspect]
     Dosage: 0.5 - 2 MG
     Route: 048
     Dates: start: 19990504
  6. RISPERDAL [Suspect]
     Dates: start: 20041101
  7. CLONIDINE [Concomitant]
     Route: 048
     Dates: start: 19990504
  8. LOTENSIN [Concomitant]
     Indication: BLOOD PRESSURE
     Route: 048
     Dates: start: 19990504
  9. CARDIZEM CD [Concomitant]
     Dosage: 80-240 MG
     Route: 048
     Dates: start: 20011001
  10. LOPRESSOR [Concomitant]
     Indication: BLOOD PRESSURE
     Route: 048
     Dates: start: 19990504
  11. ASPIRIN [Concomitant]
     Route: 048
     Dates: start: 20020421

REACTIONS (3)
  - BLINDNESS [None]
  - HOSPITALISATION [None]
  - TYPE 2 DIABETES MELLITUS [None]
